FAERS Safety Report 23029953 (Version 2)
Quarter: 2023Q4

REPORT INFORMATION
  Report Type: Report from Study
  Country: US (occurrence: US)
  Receive Date: 20231005
  Receipt Date: 20231227
  Transmission Date: 20240110
  Serious: Yes (Hospitalization, Other)
  Sender: FDA-Public Use
  Company Number: US-ABBVIE-5434134

PATIENT
  Age: 75 Year
  Sex: Male

DRUGS (1)
  1. RINVOQ [Suspect]
     Active Substance: UPADACITINIB
     Indication: Rheumatoid arthritis
     Route: 048
     Dates: start: 20191003

REACTIONS (5)
  - Limb operation [Recovering/Resolving]
  - Knee operation [Recovering/Resolving]
  - Fall [Unknown]
  - Post procedural infection [Unknown]
  - Wound [Unknown]

NARRATIVE: CASE EVENT DATE: 20221101
